FAERS Safety Report 4806932-4 (Version None)
Quarter: 2005Q4

REPORT INFORMATION
  Report Type: 
  Country: None (occurrence: None)
  Receive Date: 20051019
  Receipt Date: 20051011
  Transmission Date: 20060501
  Serious: Yes (Other)
  Sender: FDA-Public Use
  Company Number: 2005128884

PATIENT
  Age: 84 Year
  Sex: Male
  Weight: 76 kg

DRUGS (7)
  1. AMLODIPINE [Suspect]
     Indication: HYPERTENSION
     Dosage: (10 MG)
  2. SIMVASTATIN [Concomitant]
  3. ASPIRIN [Concomitant]
  4. ACE INHIBITOR NOS (ACE INHIBITOR NOS) [Concomitant]
  5. ALLOPURINOL [Concomitant]
  6. CLORAL BETAINE (CLORAL BETAINE) [Concomitant]
  7. LISINOPRIL [Concomitant]

REACTIONS (3)
  - ALBUMINURIA [None]
  - MICROALBUMINURIA [None]
  - PROTEIN TOTAL DECREASED [None]
